FAERS Safety Report 6175958-3 (Version None)
Quarter: 2009Q2

REPORT INFORMATION
  Report Type: 
  Country: None (occurrence: None)
  Receive Date: 20090501
  Receipt Date: 20090427
  Transmission Date: 20091009
  Serious: Yes (Life-Threatening)
  Sender: FDA-Public Use
  Company Number: FR-ASTRAZENECA-2001CG00066

PATIENT
  Age: 54 Year
  Sex: Female
  Weight: 54 kg

DRUGS (4)
  1. DIPRIVAN [Suspect]
     Indication: ANAESTHESIA
     Route: 042
     Dates: start: 20010104
  2. XYLOCAINE [Suspect]
     Indication: ANALGESIA
     Route: 042
     Dates: start: 20010104
  3. RAPIFEN [Suspect]
     Indication: ANAESTHESIA
     Route: 042
     Dates: start: 20010104
  4. ATROPINE [Suspect]
     Indication: ANAESTHESIA
     Route: 042
     Dates: start: 20010104

REACTIONS (3)
  - BRADYCARDIA [None]
  - CARDIAC ARREST [None]
  - CARDIAC FAILURE [None]
